FAERS Safety Report 15204686 (Version 1)
Quarter: 2018Q3

REPORT INFORMATION
  Report Type: Spontaneous
  Country: US (occurrence: US)
  Receive Date: 20180726
  Receipt Date: 20180726
  Transmission Date: 20181010
  Serious: No
  Sender: FDA-Public Use
  Company Number: US-SHIRE-US201828250

PATIENT

DRUGS (1)
  1. XIIDRA [Suspect]
     Active Substance: LIFITEGRAST
     Indication: PRODUCT USED FOR UNKNOWN INDICATION
     Dosage: UNK
     Route: 065
     Dates: start: 20180717

REACTIONS (4)
  - Instillation site reaction [Unknown]
  - Vision blurred [Unknown]
  - Dysgeusia [Unknown]
  - Instillation site lacrimation [Unknown]

NARRATIVE: CASE EVENT DATE: 20180717
